FAERS Safety Report 5602010-5 (Version None)
Quarter: 2008Q1

REPORT INFORMATION
  Report Type: 
  Country: None (occurrence: None)
  Receive Date: 20080111
  Receipt Date: 20070921
  Transmission Date: 20080703
  Serious: Yes (Other)
  Sender: FDA-Public Use
  Company Number: HQWYE893406JUL04

PATIENT
  Age: 64 Year
  Sex: Female
  Weight: 51.3 kg

DRUGS (3)
  1. PREMPRO [Suspect]
     Indication: HORMONE REPLACEMENT THERAPY
     Dosage: ORAL
     Route: 048
     Dates: start: 19950101, end: 20020101
  2. ESTRACE [Suspect]
     Dates: start: 19950310, end: 19950610
  3. PREMARIN [Suspect]
     Dosage: ORAL
     Route: 048
     Dates: start: 19931206, end: 20030116

REACTIONS (1)
  - BREAST CANCER [None]
